FAERS Safety Report 4435855-8 (Version None)
Quarter: 2004Q3

REPORT INFORMATION
  Report Type: 
  Country: None (occurrence: None)
  Receive Date: 20040726
  Receipt Date: 20040416
  Transmission Date: 20050211
  Serious: No
  Sender: FDA-Public Use
  Company Number: USA031153215

PATIENT
  Age: 69 Year
  Sex: Female
  Weight: 95 kg

DRUGS (7)
  1. FORTEO [Suspect]
     Indication: OSTEOPOROSIS
     Dosage: 20 UG/1 DAY
     Dates: start: 20031114
  2. PLAQUENIL [Concomitant]
  3. CALCIUM [Concomitant]
  4. SYNTHROID [Concomitant]
  5. LASIX [Concomitant]
  6. MIACALCIN [Concomitant]
  7. FOSAMAX [Concomitant]

REACTIONS (5)
  - DIARRHOEA [None]
  - INJECTION SITE ERYTHEMA [None]
  - INJECTION SITE HAEMORRHAGE [None]
  - INJECTION SITE PAIN [None]
  - INJECTION SITE WARMTH [None]
